FAERS Safety Report 4662647-7 (Version None)
Quarter: 2005Q2

REPORT INFORMATION
  Report Type: 
  Country: None (occurrence: None)
  Receive Date: 20050506
  Receipt Date: 20041203
  Transmission Date: 20051028
  Serious: Yes (Hospitalization)
  Sender: FDA-Public Use
  Company Number: 2004UW24815

PATIENT
  Age: 65 Year
  Sex: Male
  Weight: 81.6475 kg

DRUGS (7)
  1. NEXIUM [Suspect]
     Dosage: 30 MG PO
     Route: 048
     Dates: start: 20030101, end: 20030401
  2. NORVASC [Concomitant]
  3. ATENOLOL [Concomitant]
  4. ZANTAC [Concomitant]
  5. ASPIRIN [Concomitant]
  6. VITAMINS [Concomitant]
  7. NIASPAN [Concomitant]

REACTIONS (2)
  - ABDOMINAL PAIN [None]
  - NAUSEA [None]
